FAERS Safety Report 25507979 (Version 2)
Quarter: 2025Q3

REPORT INFORMATION
  Report Type: Spontaneous
  Country: EU (occurrence: EU)
  Receive Date: 20250703
  Receipt Date: 20250723
  Transmission Date: 20251021
  Serious: Yes (Other)
  Sender: ROCHE
  Company Number: EU-ROCHE-10000327297

PATIENT
  Age: 29 Year
  Sex: Male
  Weight: 30 kg

DRUGS (1)
  1. EVRYSDI [Suspect]
     Active Substance: RISDIPLAM
     Indication: Product used for unknown indication
     Route: 065

REACTIONS (7)
  - Gastrointestinal inflammation [Unknown]
  - Ill-defined disorder [Unknown]
  - Weight decreased [Unknown]
  - Impaired healing [Unknown]
  - Inflammation [Unknown]
  - Bacterial infection [Unknown]
  - Abdominal discomfort [Unknown]
